FAERS Safety Report 9691149 (Version 1)
Quarter: 2013Q4

REPORT INFORMATION
  Report Type: Report from Study
  Country: GB (occurrence: GB)
  Receive Date: 20131115
  Receipt Date: 20131115
  Transmission Date: 20140711
  Serious: Yes (Hospitalization)
  Sender: FDA-Public Use
  Company Number: GB-GLAXOSMITHKLINE-B0941139A

PATIENT
  Sex: 0

DRUGS (1)
  1. VOTRIENT [Suspect]

REACTIONS (7)
  - Decreased appetite [Recovered/Resolved]
  - Diarrhoea [Unknown]
  - Fatigue [Recovered/Resolved]
  - Depressed mood [Recovered/Resolved]
  - Dysarthria [Unknown]
  - Disturbance in attention [Unknown]
  - Melaena [Unknown]
